FAERS Safety Report 5862039-9 (Version None)
Quarter: 2008Q3

REPORT INFORMATION
  Report Type: 
  Country: None (occurrence: None)
  Receive Date: 20080826
  Receipt Date: 20080815
  Transmission Date: 20090109
  Serious: Yes (Other)
  Sender: FDA-Public Use
  Company Number: GXKR2008ES07720

PATIENT
  Age: 64 Year
  Sex: Female

DRUGS (3)
  1. PREDNISONE [Suspect]
  2. CYCLOSPORINE [Suspect]
  3. AZATHIOPRINE (NGX) (AZATHIOPRINE) UNKOWN [Suspect]

REACTIONS (4)
  - HUMAN PAPILLOMA VIRUS TEST POSITIVE [None]
  - POROKERATOSIS [None]
  - SKIN PAPILLOMA [None]
  - SQUAMOUS CELL CARCINOMA [None]
